FAERS Safety Report 9021924 (Version 1)
Quarter: 2013Q1

REPORT INFORMATION
  Report Type: Spontaneous
  Country: BR (occurrence: BR)
  Receive Date: 20130118
  Receipt Date: 20130118
  Transmission Date: 20140127
  Serious: Yes (Other)
  Sender: FDA-Public Use
  Company Number: BR-PFIZER INC-2013018066

PATIENT
  Age: 70 Year
  Sex: Male

DRUGS (5)
  1. ALDACTONE [Suspect]
     Dosage: UNK
     Dates: start: 2012
  2. HIDANTAL [Concomitant]
  3. LACTULOSE [Concomitant]
  4. NEUTROFER FOLICO [Concomitant]
  5. VONAU [Concomitant]

REACTIONS (1)
  - Thrombosis [Unknown]
